FAERS Safety Report 14425545 (Version 11)
Quarter: 2020Q4

REPORT INFORMATION
  Report Type: Spontaneous
  Country: ES (occurrence: ES)
  Receive Date: 20180123
  Receipt Date: 20201230
  Transmission Date: 20210113
  Serious: Yes (Death, Life-Threatening, Hospitalization, Other)
  Sender: FDA-Public Use
  Company Number: PHHY2018ES000491

PATIENT
  Age: 79 Year
  Sex: Male

DRUGS (8)
  1. METHYLPREDNISOLONE. [Suspect]
     Active Substance: METHYLPREDNISOLONE
     Indication: GLOMERULONEPHRITIS PROLIFERATIVE
     Dosage: UNK (3 BOLUS)
     Route: 042
  2. PREDNISONE. [Suspect]
     Active Substance: PREDNISONE
     Indication: GLOMERULONEPHRITIS PROLIFERATIVE
     Dosage: 60 MG, QD
     Route: 048
     Dates: start: 2011
  3. CLOFAZIMINE [Suspect]
     Active Substance: CLOFAZIMINE
     Indication: TYPE 2 LEPRA REACTION
     Dosage: 50 MG, QD
     Route: 065
  4. MYCOPHENOLATE MOFETIL. [Suspect]
     Active Substance: MYCOPHENOLATE MOFETIL
     Indication: PRODUCT USED FOR UNKNOWN INDICATION
     Dosage: 360 MG, Q12H
     Route: 065
     Dates: start: 20110501, end: 20110601
  5. CYCLOPHOSPHAMIDE. [Suspect]
     Active Substance: CYCLOPHOSPHAMIDE
     Indication: GLOMERULONEPHRITIS PROLIFERATIVE
     Dosage: 100 MG, QD
     Route: 048
     Dates: start: 20110101
  6. DAPSONE. [Suspect]
     Active Substance: DAPSONE
     Indication: TYPE 2 LEPRA REACTION
     Dosage: 100 MG, QD
     Route: 065
  7. MYFORTIC [Suspect]
     Active Substance: MYCOPHENOLATE SODIUM
     Indication: GLOMERULONEPHRITIS PROLIFERATIVE
     Dosage: 360 MG, Q12H
     Route: 065
     Dates: start: 201105, end: 201106
  8. RIFAMPICIN [Suspect]
     Active Substance: RIFAMPIN
     Indication: TYPE 2 LEPRA REACTION
     Dosage: 300 MG, QMO
     Route: 065

REACTIONS (6)
  - Pancytopenia [Fatal]
  - Pericardial haemorrhage [Fatal]
  - Infection reactivation [Fatal]
  - Pneumonia [Unknown]
  - Drug ineffective [Unknown]
  - Haemolytic anaemia [Unknown]

NARRATIVE: CASE EVENT DATE: 2011
